FAERS Safety Report 6865816-0 (Version None)
Quarter: 2010Q3

REPORT INFORMATION
  Report Type: 
  Country: None (occurrence: None)
  Receive Date: 20100720
  Receipt Date: 20100608
  Transmission Date: 20110219
  Serious: Yes (Other)
  Sender: FDA-Public Use
  Company Number: 2010SP001991

PATIENT
  Age: 14 Year
  Sex: Male
  Weight: 49 kg

DRUGS (1)
  1. ALVESCO [Suspect]
     Dosage: QD; INHALATION
     Route: 055

REACTIONS (2)
  - BRONCHOSPASM [None]
  - RASH [None]
